FAERS Safety Report 10303977 (Version 1)
Quarter: 2014Q3

REPORT INFORMATION
  Report Type: Report from Study
  Country: BR (occurrence: BR)
  Receive Date: 20140714
  Receipt Date: 20140714
  Transmission Date: 20150326
  Serious: Yes (Hospitalization, Other)
  Sender: FDA-Public Use
  Company Number: PHHY2014BR086043

PATIENT
  Age: 69 Year
  Sex: Male
  Weight: 53 kg

DRUGS (1)
  1. FORASEQ [Suspect]
     Active Substance: BUDESONIDE\FORMOTEROL FUMARATE
     Indication: DYSPNOEA
     Dosage: 1 DF, DAILY
     Route: 055
     Dates: start: 1997

REACTIONS (6)
  - Prostate cancer [Recovering/Resolving]
  - Depression [Recovering/Resolving]
  - Suicidal behaviour [Recovering/Resolving]
  - Tuberculosis [Recovering/Resolving]
  - General physical health deterioration [Recovering/Resolving]
  - Dyspnoea [Recovering/Resolving]

NARRATIVE: CASE EVENT DATE: 2007
